FAERS Safety Report 10587442 (Version 1)
Quarter: 2014Q4

REPORT INFORMATION
  Report Type: Spontaneous
  Country: US (occurrence: US)
  Receive Date: 20141117
  Receipt Date: 20141117
  Transmission Date: 20150529
  Serious: Yes (Other)
  Sender: FDA-Public Use
  Company Number: US-JNJFOC-20141103958

PATIENT

DRUGS (3)
  1. SIMEPREVIR [Suspect]
     Active Substance: SIMEPREVIR
     Indication: HEPATITIS C
     Route: 065
  2. RIBAVIRIN. [Suspect]
     Active Substance: RIBAVIRIN
     Indication: HEPATITIS C
     Route: 065
  3. SAMATASVIR [Suspect]
     Active Substance: SAMATASVIR
     Indication: HEPATITIS C
     Dosage: 25-150 MG
     Route: 065

REACTIONS (3)
  - Unevaluable event [Unknown]
  - Virologic failure [Unknown]
  - Off label use [Unknown]
